FAERS Safety Report 5057099-1 (Version None)
Quarter: 2006Q2

REPORT INFORMATION
  Report Type: 
  Country: None (occurrence: None)
  Receive Date: 20060622
  Receipt Date: 20050504
  Transmission Date: 20061013
  Serious: Yes (Death, Other)
  Sender: FDA-Public Use
  Company Number: US-JNJFOC-20050501290

PATIENT
  Age: 19 Year
  Sex: Female

DRUGS (1)
  1. FENTANYL [Suspect]
     Indication: INTENTIONAL DRUG MISUSE
     Dosage: ORAL
     Route: 048
     Dates: start: 20050401

REACTIONS (2)
  - OFF LABEL USE [None]
  - OVERDOSE [None]
